FAERS Safety Report 15240167 (Version 1)
Quarter: 2018Q3

REPORT INFORMATION
  Report Type: Spontaneous
  Country: US (occurrence: US)
  Receive Date: 20180803
  Receipt Date: 20180803
  Transmission Date: 20181010
  Serious: No
  Sender: FDA-Public Use
  Company Number: US-B.I. PHARMACEUTICALS,INC./RIDGEFIELD-2018-BI-039213

PATIENT
  Sex: Female

DRUGS (1)
  1. JARDIANCE [Suspect]
     Active Substance: EMPAGLIFLOZIN
     Indication: PRODUCT USED FOR UNKNOWN INDICATION
     Dosage: UNKNOWN;ADMINISTRATION CORRECT? NR(NOT REPORTED)
     Route: 065

REACTIONS (4)
  - Polydipsia [Unknown]
  - Blood glucose increased [Unknown]
  - Sinusitis [Unknown]
  - Thirst [Unknown]
